FAERS Safety Report 5745026-0 (Version None)
Quarter: 2008Q2

REPORT INFORMATION
  Report Type: 
  Country: None (occurrence: None)
  Receive Date: 20080521
  Receipt Date: 20080516
  Transmission Date: 20081010
  Serious: Yes (Death, Hospitalization, Other)
  Sender: FDA-Public Use
  Company Number: PHFR2008GB01385

PATIENT
  Age: 29 Year
  Sex: Male

DRUGS (4)
  1. CLOZARIL [Suspect]
     Indication: SCHIZOPHRENIA
     Dosage: 825MG / DAY
     Route: 048
     Dates: start: 20060327
  2. CLOZARIL [Suspect]
     Route: 048
     Dates: start: 20000201, end: 20041001
  3. VALPROATE SODIUM [Concomitant]
     Indication: POSTICTAL STATE
     Dosage: 1400MG / DAY
     Route: 048
  4. AMISULPRIDE [Concomitant]
     Indication: SCHIZOPHRENIA
     Dosage: 200MG / DAY
     Route: 048

REACTIONS (4)
  - ABDOMINAL PAIN [None]
  - RECTAL HAEMORRHAGE [None]
  - SALIVARY HYPERSECRETION [None]
  - SEPSIS [None]
